FAERS Safety Report 11052320 (Version 1)
Quarter: 2015Q2

REPORT INFORMATION
  Report Type: Spontaneous
  Country: CN (occurrence: CN)
  Receive Date: 20150421
  Receipt Date: 20150421
  Transmission Date: 20150821
  Serious: Yes (Other)
  Sender: FDA-Public Use
  Company Number: CN-PFIZER INC-2015128833

PATIENT
  Age: 67 Year
  Sex: Male
  Weight: 80 kg

DRUGS (2)
  1. SUTENT [Suspect]
     Active Substance: SUNITINIB MALATE
     Indication: CHEMOTHERAPY
     Dosage: 37.5 MG, 1X/DAY (EVERY 28 DAYS)
     Route: 048
     Dates: start: 20141031, end: 20141104
  2. TEMOZOLOMIDE. [Suspect]
     Active Substance: TEMOZOLOMIDE
     Indication: CHEMOTHERAPY
     Dosage: 400 MG, 1X/DAY (DAY 1 -DAY 5)
     Route: 048
     Dates: start: 20141031, end: 20141104

REACTIONS (1)
  - Bone marrow failure [Recovering/Resolving]

NARRATIVE: CASE EVENT DATE: 20141123
